FAERS Safety Report 8714715 (Version 3)
Quarter: 2012Q4

REPORT INFORMATION
  Report Type: 
  Country: US (occurrence: US)
  Receive Date: 20120809
  Receipt Date: 20120924
  Transmission Date: 20130627
  Serious: Yes (Other)
  Sender: FDA-Public Use
  Company Number: US-TEVA-352154USA

PATIENT
  Sex: Female

DRUGS (2)
  1. CLARAVIS [Suspect]
     Dosage: 60 Milligram Daily; 2 in AM, One in PM
     Route: 048
     Dates: start: 20120531, end: 20120801
  2. LEVONORGESTREL [Suspect]

REACTIONS (2)
  - Unintended pregnancy [Recovered/Resolved]
  - Ectopic pregnancy [Recovered/Resolved]
